FAERS Safety Report 9728560 (Version 2)
Quarter: 2014Q3

REPORT INFORMATION
  Report Type: Spontaneous
  Country: JP (occurrence: None)
  Receive Date: 20131202
  Receipt Date: 20140808
  Transmission Date: 20150326
  Serious: Yes (Hospitalization)
  Sender: FDA-Public Use
  Company Number: SYM-2013-13062

PATIENT
  Age: 78 Year
  Sex: Male

DRUGS (5)
  1. TAXOTERE [Suspect]
     Active Substance: DOCETAXEL
     Indication: OESOPHAGEAL CARCINOMA
     Dosage: INTRAVENOUS (NOT OTHERWISE SPECIFIED)
     Route: 042
     Dates: start: 201306
  2. TRACE ELEMENTS [Suspect]
     Active Substance: UNSPECIFIED INGREDIENT
     Indication: OESOPHAGEAL CARCINOMA
     Route: 041
     Dates: start: 20130711
  3. MULTIVITAMINS [Suspect]
     Active Substance: VITAMINS
     Indication: OESOPHAGEAL CARCINOMA
     Route: 041
     Dates: start: 20130711
  4. FLUOROURACIL. [Suspect]
     Active Substance: FLUOROURACIL
     Indication: OESOPHAGEAL CARCINOMA
     Dosage: INTRAVENOUS (NOT OTHERWISE SPECIFIED)
     Route: 042
     Dates: start: 201306
  5. SOLUTIONS FO PARENTERAL NUTRITION (SOLUTIONS FOR PARENTERAL NUTRITIONS) [Concomitant]

REACTIONS (4)
  - Coronary artery stenosis [None]
  - Arteriosclerosis coronary artery [None]
  - Anaphylactic shock [None]
  - Kounis syndrome [None]

NARRATIVE: CASE EVENT DATE: 201306
